FAERS Safety Report 5725870-6 (Version None)
Quarter: 2008Q2

REPORT INFORMATION
  Report Type: 
  Country: None (occurrence: None)
  Receive Date: 20080430
  Receipt Date: 20080418
  Transmission Date: 20081010
  Serious: Yes (Other)
  Sender: FDA-Public Use
  Company Number: 2008006220

PATIENT
  Sex: Male

DRUGS (1)
  1. LUBRIDERM SKIN NOURISHING WITH OAT EXTRACT (NO ACTIVE INGREDIENT) [Suspect]
     Indication: DRY SKIN
     Dosage: TOPICAL
     Route: 061

REACTIONS (4)
  - DRY SKIN [None]
  - FACE OEDEMA [None]
  - HYPERAESTHESIA [None]
  - SKIN EXFOLIATION [None]
